FAERS Safety Report 13390755 (Version 1)
Quarter: 2017Q1

REPORT INFORMATION
  Report Type: Spontaneous
  Country: US (occurrence: US)
  Receive Date: 20170331
  Receipt Date: 20170331
  Transmission Date: 20170429
  Serious: No
  Sender: FDA-Public Use
  Company Number: None

PATIENT

DRUGS (2)
  1. GEMFIBROZIL. [Suspect]
     Active Substance: GEMFIBROZIL
     Dosage: TABLET ORAL 600 MG 500 TABLETS
     Route: 048
  2. GABAPENTIN GABAPENTIN [Suspect]
     Active Substance: GABAPENTIN
     Dosage: TABLET ORAL 600 MG BOTTLE 500 TABLETS
     Route: 048

REACTIONS (7)
  - Drug dispensing error [None]
  - Neuralgia [None]
  - Product label confusion [None]
  - Wrong drug administered [None]
  - Condition aggravated [None]
  - Emotional distress [None]
  - Product packaging confusion [None]
